FAERS Safety Report 6053055-5 (Version None)
Quarter: 2009Q1

REPORT INFORMATION
  Report Type: 
  Country: None (occurrence: None)
  Receive Date: 20090122
  Receipt Date: 20090107
  Transmission Date: 20090719
  Serious: Yes (Other)
  Sender: FDA-Public Use
  Company Number: DSU-2009-00043

PATIENT
  Sex: Female

DRUGS (3)
  1. AZOR [Suspect]
     Indication: DRUG USE FOR UNKNOWN INDICATION
     Dosage: PER ORAL
     Route: 048
  2. BENICAR [Concomitant]
  3. NORVASC [Concomitant]

REACTIONS (1)
  - THROAT TIGHTNESS [None]
